FAERS Safety Report 5872848-8 (Version None)
Quarter: 2008Q3

REPORT INFORMATION
  Report Type: 
  Country: None (occurrence: None)
  Receive Date: 20080903
  Receipt Date: 20080811
  Transmission Date: 20090109
  Serious: No
  Sender: FDA-Public Use
  Company Number: ADE# 08-124

PATIENT
  Age: 61 Year
  Sex: Male
  Weight: 68.0396 kg

DRUGS (1)
  1. CHOLINE MAGNESIUM TRISALICYLATE TABLETS, 500 MG [Suspect]
     Indication: ARTHRITIS
     Dosage: 1000 MG TWICE DAILY
     Dates: start: 20080701, end: 20080801

REACTIONS (2)
  - ABDOMINAL PAIN UPPER [None]
  - DRUG INTOLERANCE [None]
